FAERS Safety Report 10150147 (Version 2)
Quarter: 2014Q3

REPORT INFORMATION
  Report Type: Spontaneous
  Country: US (occurrence: US)
  Receive Date: 20140502
  Receipt Date: 20140801
  Transmission Date: 20150326
  Serious: Yes (Other)
  Sender: FDA-Public Use
  Company Number: US-GLAXOSMITHKLINE-A1071675A

PATIENT
  Age: 56 Year
  Sex: Female

DRUGS (1)
  1. LAMICTAL [Suspect]
     Active Substance: LAMOTRIGINE
     Indication: PRODUCT USED FOR UNKNOWN INDICATION
     Dosage: 200MG UNKNOWN
     Route: 065

REACTIONS (15)
  - Fibromyalgia [Unknown]
  - Tendonitis [Unknown]
  - Pain [Unknown]
  - Impaired work ability [Unknown]
  - Crying [Unknown]
  - Disturbance in attention [Unknown]
  - Affective disorder [Unknown]
  - Decreased appetite [Unknown]
  - Asthenia [Unknown]
  - Anxiety [Unknown]
  - Back pain [Unknown]
  - Bipolar disorder [Unknown]
  - Insomnia [Unknown]
  - Nerve compression [Unknown]
  - Hyperlipidaemia [Unknown]
